FAERS Safety Report 15074911 (Version 1)
Quarter: 2018Q2

REPORT INFORMATION
  Report Type: Report from Study
  Country: US (occurrence: US)
  Receive Date: 20180627
  Receipt Date: 20180627
  Transmission Date: 20180711
  Serious: No
  Sender: FDA-Public Use
  Company Number: US-SAOL THERAPEUTICS-2017SAO01608

PATIENT
  Age: 53 Year
  Sex: Female

DRUGS (12)
  1. COMPOUNDED BACLOFEN [Suspect]
     Active Substance: BACLOFEN
     Dosage: 12.98 ?G, \DAY
     Route: 037
  2. MORPHINE [Suspect]
     Active Substance: MORPHINE
     Dosage: 0.649 MG, \DAY
     Route: 037
  3. MORPHINE [Suspect]
     Active Substance: MORPHINE
     Dosage: 2.444 MG, \DAY MAX
     Route: 037
     Dates: start: 20160928
  4. CLONIDINE. [Suspect]
     Active Substance: CLONIDINE
     Dosage: 19.48 ?G, \DAY
     Route: 037
  5. COMPOUNDED BACLOFEN [Suspect]
     Active Substance: BACLOFEN
     Dosage: 54.83 ?G, \DAY MAX
     Route: 037
     Dates: end: 20160928
  6. BUPIVACAINE. [Suspect]
     Active Substance: BUPIVACAINE
     Dosage: 5.483 MG, \DAY MAX
     Route: 037
     Dates: end: 20160928
  7. BUPIVACAINE. [Suspect]
     Active Substance: BUPIVACAINE
     Dosage: 1.298 MG, \DAY
     Route: 037
  8. BUPIVACAINE. [Suspect]
     Active Substance: BUPIVACAINE
     Dosage: 4.888 MG, \DAY MAX
     Route: 037
     Dates: start: 20160928
  9. CLONIDINE. [Suspect]
     Active Substance: CLONIDINE
     Dosage: 73.33 ?G, \DAY MAX
     Route: 037
     Dates: start: 20160928
  10. COMPOUNDED BACLOFEN [Suspect]
     Active Substance: BACLOFEN
     Dosage: 48.88 ?G, \DAY MAX
     Route: 037
     Dates: start: 20160928
  11. CLONIDINE. [Suspect]
     Active Substance: CLONIDINE
     Dosage: 82.25 ?G, \DAY MAX
     Route: 037
     Dates: end: 20160928
  12. MORPHINE [Suspect]
     Active Substance: MORPHINE
     Dosage: 2.742 MG, \DAY MAX
     Route: 037
     Dates: end: 20160928

REACTIONS (1)
  - Catheter site pain [Recovered/Resolved]

NARRATIVE: CASE EVENT DATE: 20160928
